FAERS Safety Report 19951459 (Version 1)
Quarter: 2021Q4

REPORT INFORMATION
  Report Type: Spontaneous
  Country: CN (occurrence: CN)
  Receive Date: 20211013
  Receipt Date: 20211013
  Transmission Date: 20220303
  Serious: Yes (Other)
  Sender: FDA-Public Use
  Company Number: CN-PFIZER INC-202101302025

PATIENT
  Age: 2 Year
  Sex: Female
  Weight: 11 kg

DRUGS (3)
  1. AZITHROMYCIN ANHYDROUS [Suspect]
     Active Substance: AZITHROMYCIN ANHYDROUS
     Indication: Anti-infective therapy
     Dosage: 0.1 G, ONCE A DAY
     Route: 041
     Dates: start: 20210924, end: 20210925
  2. CEFIXIME [Concomitant]
     Active Substance: CEFIXIME
     Indication: Anti-infective therapy
     Dosage: 25 MG, 2X/DAY
     Route: 048
     Dates: start: 20210923, end: 20210926
  3. DEXTROSE [Concomitant]
     Active Substance: DEXTROSE
     Indication: Anti-infective therapy
     Dosage: 100 ML, 1X/DAY
     Route: 041
     Dates: start: 20210924

REACTIONS (3)
  - Rash papular [Recovering/Resolving]
  - Pruritus [Unknown]
  - Off label use [Unknown]

NARRATIVE: CASE EVENT DATE: 20210924
